FAERS Safety Report 14602104 (Version 1)
Quarter: 2018Q1

REPORT INFORMATION
  Report Type: Spontaneous
  Country: US (occurrence: US)
  Receive Date: 20180306
  Receipt Date: 20180306
  Transmission Date: 20180509
  Serious: No
  Sender: FDA-Public Use
  Company Number: PHEH2018US006896

PATIENT
  Sex: Male

DRUGS (2)
  1. EAR DRY (BORIC ACID\ISOPROPYL ALCOHOL) [Suspect]
     Active Substance: BORIC ACID\ISOPROPYL ALCOHOL
     Indication: PRODUCT USED FOR UNKNOWN INDICATION
     Route: 065
  2. SWIM-EAR [Suspect]
     Active Substance: ISOPROPYL ALCOHOL
     Indication: PRODUCT USED FOR UNKNOWN INDICATION
     Route: 001

REACTIONS (3)
  - Feeling hot [Unknown]
  - Drug ineffective [Unknown]
  - Ear discomfort [Unknown]
